FAERS Safety Report 7818967-8 (Version None)
Quarter: 2011Q4

REPORT INFORMATION
  Report Type: 
  Country: None (occurrence: None)
  Receive Date: 20111017
  Receipt Date: 20111017
  Transmission Date: 20120403
  Serious: Yes (Other)
  Sender: FDA-Public Use
  Company Number: None

PATIENT
  Sex: Female
  Weight: 91 kg

DRUGS (2)
  1. HIZENTRA [Suspect]
  2. HIZENTRA [Suspect]
     Indication: IMMUNODEFICIENCY COMMON VARIABLE
     Dosage: 13GM WEEKLY SQ
     Route: 058
     Dates: start: 20110820, end: 20110908

REACTIONS (2)
  - INJECTION SITE SWELLING [None]
  - RESPIRATORY DISTRESS [None]
